FAERS Safety Report 8803781 (Version 2)
Quarter: 2012Q4

REPORT INFORMATION
  Report Type: 
  Country: JP (occurrence: JP)
  Receive Date: 20120924
  Receipt Date: 20121012
  Transmission Date: 20130627
  Serious: Yes (Life-Threatening, Hospitalization)
  Sender: FDA-Public Use
  Company Number: JP-PFIZER INC-2012188336

PATIENT
  Age: 72 Year
  Sex: Male
  Weight: 64.1 kg

DRUGS (10)
  1. ZITHROMAC [Suspect]
     Indication: ACUTE RESPIRATORY DISTRESS SYNDROME
     Dosage: 500 mg, 1x/day (1mg/ml for 2 hours)
     Route: 041
     Dates: start: 20120730, end: 20120731
  2. MIDAZOLAM [Suspect]
     Dosage: 3 to 6 mg per hour for 24 hours after intubation
     Route: 041
     Dates: start: 20120730, end: 20120731
  3. FINIBAX [Concomitant]
     Indication: ACUTE RESPIRATORY DISTRESS SYNDROME
     Dosage: 1 g, 3x/day
     Route: 041
     Dates: start: 20120730, end: 20120810
  4. FINIBAX [Concomitant]
     Indication: DISSEMINATED INTRAVASCULAR COAGULATION
  5. KENKETU NONTHRON [Concomitant]
     Indication: DISSEMINATED INTRAVASCULAR COAGULATION
     Dosage: 3000 units once a day
     Route: 041
     Dates: start: 20120730, end: 20120730
  6. PROBITOR [Concomitant]
     Indication: DISSEMINATED INTRAVASCULAR COAGULATION
     Dosage: 1500 mg, 1x/day
     Route: 041
     Dates: start: 20120730, end: 20120801
  7. NOR ADRENALIN [Concomitant]
     Indication: BLOOD PRESSURE DECREASED
     Dosage: 0.02 g, for continuous 24 hours
     Route: 041
     Dates: start: 20120730, end: 20120803
  8. ELASPOL [Concomitant]
     Indication: ACUTE RESPIRATORY DISTRESS SYNDROME
     Dosage: 300 mg, for continuous 24 hours
     Route: 041
     Dates: start: 20120730, end: 20120806
  9. OMEPRAL [Concomitant]
     Indication: DISSEMINATED INTRAVASCULAR COAGULATION
     Dosage: 20 mg, 2x/day
     Route: 041
     Dates: start: 20120730, end: 20120730
  10. SEDAPAIN [Concomitant]
     Dosage: 4.5 to 9 mg per hour for 24 hours after intubation
     Dates: start: 20120730, end: 20120731

REACTIONS (1)
  - Sick sinus syndrome [Recovered/Resolved]
